FAERS Safety Report 19116223 (Version 1)
Quarter: 2021Q2

REPORT INFORMATION
  Report Type: Spontaneous
  Country: US (occurrence: US)
  Receive Date: 20210410
  Receipt Date: 20210410
  Transmission Date: 20210717
  Serious: No
  Sender: FDA-Public Use
  Company Number: US-SA-2021SA117738

PATIENT
  Age: 74 Year
  Sex: Female

DRUGS (6)
  1. CELEBREX [Concomitant]
     Active Substance: CELECOXIB
     Dosage: 100 MG
  2. DUPIXENT [Suspect]
     Active Substance: DUPILUMAB
     Indication: ASTHMA
     Dosage: 300 MG, QOW
     Route: 058
     Dates: end: 2021
  3. DOXEPIN HCL [Concomitant]
     Active Substance: DOXEPIN HYDROCHLORIDE
     Dosage: 10 MG
  4. LIPITOR [Concomitant]
     Active Substance: ATORVASTATIN CALCIUM
     Dosage: 10 MG
  5. ZYRTEC [Concomitant]
     Active Substance: CETIRIZINE HYDROCHLORIDE
     Dosage: 10 MG
  6. ASPIRIN EC [Concomitant]
     Active Substance: ASPIRIN
     Dosage: 81 MG

REACTIONS (2)
  - Joint dislocation [Unknown]
  - Rash [Unknown]

NARRATIVE: CASE EVENT DATE: 20210403
